FAERS Safety Report 7597507-5 (Version None)
Quarter: 2011Q3

REPORT INFORMATION
  Report Type: 
  Country: None (occurrence: None)
  Receive Date: 20110708
  Receipt Date: 20110705
  Transmission Date: 20111222
  Serious: Yes (Death, Hospitalization)
  Sender: FDA-Public Use
  Company Number: PHHY2010TR71975

PATIENT
  Sex: Female

DRUGS (1)
  1. EXELON [Suspect]
     Dosage: PATCH 10 CM3
     Route: 062

REACTIONS (1)
  - MYOCARDIAL INFARCTION [None]
